FAERS Safety Report 20640936 (Version 1)
Quarter: 2022Q1

REPORT INFORMATION
  Report Type: Spontaneous
  Country: US (occurrence: US)
  Receive Date: 20220327
  Receipt Date: 20220327
  Transmission Date: 20220423
  Serious: Yes (Other)
  Sender: FDA-Public Use
  Company Number: US-Albireo AB-2021ALB000133

PATIENT
  Age: 17 Year
  Sex: Female
  Weight: 45.6 kg

DRUGS (1)
  1. BYLVAY [Suspect]
     Active Substance: ODEVIXIBAT
     Indication: Progressive familial intrahepatic cholestasis
     Dosage: CUMULATIVE DOSE - 2000 MICROGRAM
     Route: 048
     Dates: start: 20211107, end: 20211117

REACTIONS (1)
  - Diarrhoea [Recovering/Resolving]
